FAERS Safety Report 9313405 (Version 1)
Quarter: 2013Q2

REPORT INFORMATION
  Report Type: Spontaneous
  Country: US (occurrence: US)
  Receive Date: 20130528
  Receipt Date: 20130528
  Transmission Date: 20140414
  Serious: No
  Sender: FDA-Public Use
  Company Number: US-ABBOTT-13P-163-1072908-00

PATIENT
  Sex: Male
  Weight: 95.34 kg

DRUGS (3)
  1. ANDROGEL [Suspect]
     Indication: BLOOD TESTOSTERONE DECREASED
     Dosage: 2 PUMPS DAILY
     Dates: start: 201211, end: 20130402
  2. ANDROGEL [Suspect]
     Dosage: 4 PUMPS DAILY
     Dates: start: 20130403
  3. BENICAR [Concomitant]
     Indication: PRODUCT USED FOR UNKNOWN INDICATION

REACTIONS (2)
  - Product quality issue [Unknown]
  - Blood testosterone decreased [Not Recovered/Not Resolved]
